FAERS Safety Report 8619297-7 (Version None)
Quarter: 2012Q3

REPORT INFORMATION
  Report Type: 
  Country: None (occurrence: None)
  Receive Date: 20120824
  Receipt Date: 20120816
  Transmission Date: 20120928
  Serious: Yes (Other)
  Sender: FDA-Public Use
  Company Number: US-ASTELLAS-2012US004531

PATIENT
  Sex: Female
  Weight: 62 kg

DRUGS (2)
  1. PROGRAF [Suspect]
     Dosage: 9 MG, BID
     Route: 048
     Dates: start: 20120501
  2. PROGRAF [Suspect]
     Indication: RENAL TRANSPLANT
     Dosage: 4 MG BID AND 10 MG DAILY
     Route: 048
     Dates: start: 20030801

REACTIONS (3)
  - DRUG INEFFECTIVE [None]
  - KIDNEY TRANSPLANT REJECTION [None]
  - RENAL FAILURE [None]
